FAERS Safety Report 6788006-9 (Version None)
Quarter: 2010Q2

REPORT INFORMATION
  Report Type: 
  Country: None (occurrence: None)
  Receive Date: 20100623
  Receipt Date: 20071205
  Transmission Date: 20101027
  Serious: Yes (Other)
  Sender: FDA-Public Use
  Company Number: US-PFIZER INC-2007090621

PATIENT
  Sex: Male
  Weight: 95.454 kg

DRUGS (1)
  1. FLUCONAZOLE [Suspect]
     Indication: FUNGAL SKIN INFECTION
     Dates: start: 20070830, end: 20070831

REACTIONS (3)
  - DRUG HYPERSENSITIVITY [None]
  - RASH GENERALISED [None]
  - RASH PRURITIC [None]
